FAERS Safety Report 16410181 (Version 1)
Quarter: 2019Q2

REPORT INFORMATION
  Report Type: Report from Study
  Country: US (occurrence: US)
  Receive Date: 20190610
  Receipt Date: 20190610
  Transmission Date: 20190711
  Serious: Yes (Other)
  Sender: FDA-Public Use
  Company Number: US-ROCHE-1639799

PATIENT

DRUGS (9)
  1. BENDAMUSTINE [Suspect]
     Active Substance: BENDAMUSTINE
     Indication: CHRONIC LYMPHOCYTIC LEUKAEMIA
     Dosage: DAYS 1-2 OF EACH CYCLE FOR 6 CYCLES
     Route: 042
  2. ONDANSETRON [Concomitant]
     Active Substance: ONDANSETRON
     Route: 042
  3. DEXAMETHASONE. [Concomitant]
     Active Substance: DEXAMETHASONE
     Route: 042
  4. ASPIRIN [ACETYLSALICYLIC ACID] [Concomitant]
     Active Substance: ASPIRIN
     Route: 065
  5. ALLOPURINOL. [Concomitant]
     Active Substance: ALLOPURINOL
  6. RITUXIMAB. [Suspect]
     Active Substance: RITUXIMAB
     Indication: CHRONIC LYMPHOCYTIC LEUKAEMIA
     Dosage: DAY 1, CYCLE 1
     Route: 042
  7. RITUXIMAB. [Suspect]
     Active Substance: RITUXIMAB
     Dosage: DAY 1, CYCLES 2-6
     Route: 042
  8. LENALIDOMIDE [Suspect]
     Active Substance: LENALIDOMIDE
     Indication: CHRONIC LYMPHOCYTIC LEUKAEMIA
     Dosage: DAYS 8-21 OF CYCLE 1 AT DOSES RANGING FROM 2.5 TO 5MG, ?DAYS 1-21 OF CYCLES 2-6 AT DOSES RANGING FRO
     Route: 048
  9. PEGFILGRASTIM [Concomitant]
     Active Substance: PEGFILGRASTIM

REACTIONS (19)
  - Rash maculo-papular [Unknown]
  - Embolism [Unknown]
  - Alanine aminotransferase increased [Unknown]
  - Neutrophil count decreased [Unknown]
  - Infection [Unknown]
  - Hyperglycaemia [Unknown]
  - White blood cell count decreased [Unknown]
  - Cytomegalovirus infection [Unknown]
  - Infestation [Unknown]
  - Febrile neutropenia [Unknown]
  - Pneumonitis [Unknown]
  - Fatigue [Unknown]
  - Nausea [Unknown]
  - Anaemia [Unknown]
  - Atrial fibrillation [Unknown]
  - Diarrhoea [Unknown]
  - Hyponatraemia [Unknown]
  - Neutropenia [Unknown]
  - Platelet count decreased [Unknown]
